FAERS Safety Report 5851913-5 (Version None)
Quarter: 2008Q3

REPORT INFORMATION
  Report Type: 
  Country: None (occurrence: None)
  Receive Date: 20080820
  Receipt Date: 20080812
  Transmission Date: 20090109
  Serious: Yes (Hospitalization, Other)
  Sender: FDA-Public Use
  Company Number: US-PFIZER INC-2008067502

PATIENT
  Sex: Female
  Weight: 102 kg

DRUGS (1)
  1. CELEBREX [Suspect]

REACTIONS (4)
  - CARDIAC MURMUR [None]
  - CONVULSION [None]
  - EXCORIATION [None]
  - PERIORBITAL OEDEMA [None]
